FAERS Safety Report 6239147-6 (Version None)
Quarter: 2009Q2

REPORT INFORMATION
  Report Type: 
  Country: None (occurrence: None)
  Receive Date: 20090622
  Receipt Date: 20090616
  Transmission Date: 20091009
  Serious: Yes (Death, Hospitalization)
  Sender: FDA-Public Use
  Company Number: DE-ABBOTT-09P-062-0501700-00

PATIENT
  Sex: Female

DRUGS (6)
  1. HUMIRA [Suspect]
     Indication: RHEUMATOID ARTHRITIS
     Dates: start: 20040101, end: 20040301
  2. HUMIRA [Suspect]
     Dates: start: 20040801, end: 20040801
  3. HYDROXYCHLOROQUINE SULFATE [Concomitant]
     Indication: RHEUMATOID ARTHRITIS
  4. QUENSYL [Concomitant]
     Indication: DRUG USE FOR UNKNOWN INDICATION
     Dosage: OPD
  5. SYNTESTAN [Concomitant]
     Indication: DRUG USE FOR UNKNOWN INDICATION
  6. TRAMAL RET. [Concomitant]
     Indication: DRUG USE FOR UNKNOWN INDICATION

REACTIONS (5)
  - CONSTIPATION [None]
  - HAEMATOCHEZIA [None]
  - INTESTINAL INFARCTION [None]
  - MULTI-ORGAN FAILURE [None]
  - SHOCK [None]
